FAERS Safety Report 5932484-1 (Version None)
Quarter: 2008Q4

REPORT INFORMATION
  Report Type: 
  Country: None (occurrence: None)
  Receive Date: 20081028
  Receipt Date: 20081023
  Transmission Date: 20090506
  Serious: Yes (Death, Hospitalization)
  Sender: FDA-Public Use
  Company Number: GR-ABBOTT-08P-066-0483871-00

PATIENT
  Age: 81 Year
  Sex: Male
  Weight: 71 kg

DRUGS (13)
  1. ZEMPLAR [Suspect]
     Indication: HYPERPARATHYROIDISM SECONDARY
     Route: 042
     Dates: start: 20080611
  2. DARBEPOETIN ALFA [Concomitant]
     Indication: DRUG USE FOR UNKNOWN INDICATION
  3. IRON DEXTRAN [Concomitant]
     Indication: DRUG USE FOR UNKNOWN INDICATION
  4. LEVOCARNITINE [Concomitant]
     Indication: DRUG USE FOR UNKNOWN INDICATION
  5. FOLIC ACID [Concomitant]
     Indication: DRUG USE FOR UNKNOWN INDICATION
  6. NEUROGRISEVIT [Concomitant]
     Indication: DRUG USE FOR UNKNOWN INDICATION
  7. EVATON [Concomitant]
     Indication: DRUG USE FOR UNKNOWN INDICATION
  8. BUFLOMEDIL HYDROCHLORIDE [Concomitant]
     Indication: DRUG USE FOR UNKNOWN INDICATION
  9. SEVELAMER [Concomitant]
     Indication: DRUG USE FOR UNKNOWN INDICATION
  10. TITRALAC [Concomitant]
     Indication: DRUG USE FOR UNKNOWN INDICATION
  11. ISOPHANE INSULIN [Concomitant]
     Indication: DRUG USE FOR UNKNOWN INDICATION
  12. CLOPIDOGREL BISULFATE [Concomitant]
     Indication: DRUG USE FOR UNKNOWN INDICATION
  13. PENTOXIFYLLINE [Concomitant]
     Indication: DRUG USE FOR UNKNOWN INDICATION

REACTIONS (4)
  - ANOREXIA [None]
  - BLADDER CANCER [None]
  - DYSPNOEA [None]
  - FATIGUE [None]
